FAERS Safety Report 14378713 (Version 2)
Quarter: 2018Q2

REPORT INFORMATION
  Report Type: Spontaneous
  Country: US (occurrence: US)
  Receive Date: 20180112
  Receipt Date: 20180613
  Transmission Date: 20180711
  Serious: Yes (Other)
  Sender: FDA-Public Use
  Company Number: US-ASTRAZENECA-2018SE03496

PATIENT
  Age: 16977 Day
  Sex: Male
  Weight: 83.9 kg

DRUGS (66)
  1. NEXIUM [Suspect]
     Active Substance: ESOMEPRAZOLE MAGNESIUM
     Indication: GASTROOESOPHAGEAL REFLUX DISEASE
     Route: 048
     Dates: start: 2003, end: 2016
  2. METOPROLOL. [Concomitant]
     Active Substance: METOPROLOL
     Indication: BENIGN PROSTATIC HYPERPLASIA
     Route: 048
     Dates: start: 2005
  3. POTASSIUM CHLORIDE. [Concomitant]
     Active Substance: POTASSIUM CHLORIDE
     Indication: BENIGN PROSTATIC HYPERPLASIA
     Route: 048
     Dates: start: 20031231
  4. FUROSEMIDE. [Concomitant]
     Active Substance: FUROSEMIDE
     Indication: FLUID IMBALANCE
     Route: 048
     Dates: start: 20150624
  5. FELODIPINE. [Concomitant]
     Active Substance: FELODIPINE
     Indication: BENIGN PROSTATIC HYPERPLASIA
     Route: 065
     Dates: start: 2005
  6. LATANOPROST. [Concomitant]
     Active Substance: LATANOPROST
     Indication: GLAUCOMA
     Route: 065
     Dates: start: 2005
  7. HUMULIN R [Concomitant]
     Active Substance: INSULIN HUMAN
     Dosage: 100 UNITS / ML SO 10ML VIAL
     Route: 065
     Dates: start: 19940614
  8. HEPARIN [Concomitant]
     Active Substance: HEPARIN SODIUM
     Dosage: 1000 UNITS/ML
     Route: 065
  9. DILTIAZEM. [Concomitant]
     Active Substance: DILTIAZEM
     Indication: VASOSPASM
     Route: 065
  10. SIMVASTATIN. [Concomitant]
     Active Substance: SIMVASTATIN
     Indication: BENIGN PROSTATIC HYPERPLASIA
     Route: 048
     Dates: start: 20030808
  11. ASPIRIN. [Concomitant]
     Active Substance: ASPIRIN
     Indication: ANTICOAGULANT THERAPY
     Route: 048
     Dates: start: 20090407
  12. CALCIUM CARBONATE. [Concomitant]
     Active Substance: CALCIUM CARBONATE
     Route: 048
  13. NEXIUM [Suspect]
     Active Substance: ESOMEPRAZOLE MAGNESIUM
     Indication: GASTROOESOPHAGEAL REFLUX DISEASE
     Route: 048
     Dates: start: 20140707
  14. PREVACID [Suspect]
     Active Substance: LANSOPRAZOLE
     Indication: GASTROOESOPHAGEAL REFLUX DISEASE
     Dosage: GENERIC
     Route: 065
     Dates: start: 2003, end: 2016
  15. PREVACID [Suspect]
     Active Substance: LANSOPRAZOLE
     Indication: GASTROOESOPHAGEAL REFLUX DISEASE
     Route: 065
     Dates: start: 2003, end: 2007
  16. PRAVASTATIN. [Concomitant]
     Active Substance: PRAVASTATIN
     Indication: BENIGN PROSTATIC HYPERPLASIA
     Route: 048
     Dates: start: 19981201
  17. ACETAMINOPHEN. [Concomitant]
     Active Substance: ACETAMINOPHEN
     Indication: PAIN
     Route: 048
     Dates: start: 19991027
  18. NOVOLOG [Concomitant]
     Active Substance: INSULIN ASPART
     Dosage: SUBCUTANEOUS INJECTION: 20UNITS BREAKFAST, 16 UNITS LUNCH,
     Route: 065
  19. NOVOLIN [Concomitant]
     Active Substance: INSULIN HUMAN
     Route: 065
     Dates: start: 20011015
  20. GLUCAGON. [Concomitant]
     Active Substance: GLUCAGON
     Route: 065
  21. SEVELAMER [Concomitant]
     Active Substance: SEVELAMER
     Dosage: WITH MEAL
     Route: 048
  22. NEXIUM [Suspect]
     Active Substance: ESOMEPRAZOLE MAGNESIUM
     Indication: GASTROOESOPHAGEAL REFLUX DISEASE
     Route: 048
     Dates: start: 20140707
  23. PROTONIX [Suspect]
     Active Substance: PANTOPRAZOLE SODIUM
     Dosage: ONE TABLET BY MOUTH EVERY DAY 30 MINUTES BEFORE A MEAL
     Route: 048
     Dates: start: 20150912, end: 2016
  24. ROSIGLITAZONE [Concomitant]
     Active Substance: ROSIGLITAZONE
     Indication: BENIGN PROSTATIC HYPERPLASIA
     Route: 065
     Dates: start: 2005
  25. HUMALOG [Concomitant]
     Active Substance: INSULIN LISPRO
     Dosage: 100 UNITS / ML SO 10ML VIAL
     Route: 065
     Dates: start: 20020530
  26. ATENOLOL. [Concomitant]
     Active Substance: ATENOLOL
     Route: 048
     Dates: start: 20040310
  27. MICARDIS [Concomitant]
     Active Substance: TELMISARTAN
     Route: 048
     Dates: start: 20090106
  28. MAXZIDE [Concomitant]
     Active Substance: HYDROCHLOROTHIAZIDE\TRIAMTERENE
     Indication: VASOSPASM
     Dosage: TAKE ONE TABLET EVERY DAY
     Route: 048
     Dates: start: 20030602
  29. NEXIUM [Suspect]
     Active Substance: ESOMEPRAZOLE MAGNESIUM
     Indication: GASTROOESOPHAGEAL REFLUX DISEASE
     Dosage: GENERIC
     Route: 048
     Dates: start: 2008, end: 2015
  30. NEXIUM [Suspect]
     Active Substance: ESOMEPRAZOLE MAGNESIUM
     Indication: GASTROOESOPHAGEAL REFLUX DISEASE
     Route: 048
     Dates: start: 20100909
  31. PREVACID [Suspect]
     Active Substance: LANSOPRAZOLE
     Indication: GASTROOESOPHAGEAL REFLUX DISEASE
     Dosage: GENERIC
     Route: 065
     Dates: start: 2003, end: 2016
  32. LISINOPRIL. [Concomitant]
     Active Substance: LISINOPRIL
     Indication: BENIGN PROSTATIC HYPERPLASIA
     Route: 048
     Dates: start: 19990204
  33. AMLODIPINE [Concomitant]
     Active Substance: AMLODIPINE BESYLATE
     Indication: BENIGN PROSTATIC HYPERPLASIA
     Route: 065
     Dates: start: 2005
  34. ATENOLOL. [Concomitant]
     Active Substance: ATENOLOL
     Indication: BENIGN PROSTATIC HYPERPLASIA
     Route: 065
     Dates: start: 2005
  35. ATORVASTATIN [Concomitant]
     Active Substance: ATORVASTATIN
     Indication: BENIGN PROSTATIC HYPERPLASIA
     Route: 048
     Dates: start: 20090129
  36. CLOPIDOGREL [Concomitant]
     Active Substance: CLOPIDOGREL BISULFATE
     Indication: BENIGN PROSTATIC HYPERPLASIA
     Route: 048
     Dates: start: 2005
  37. CALCITRIOL. [Concomitant]
     Active Substance: CALCITRIOL
     Route: 048
  38. NEXIUM [Suspect]
     Active Substance: ESOMEPRAZOLE MAGNESIUM
     Indication: GASTROOESOPHAGEAL REFLUX DISEASE
     Route: 048
     Dates: start: 2003, end: 2016
  39. HUMULIN N [Concomitant]
     Active Substance: INSULIN HUMAN
     Indication: DIABETES MELLITUS
     Dosage: 100 UNITS / ML 10ML VIAL
     Route: 065
     Dates: start: 19940614
  40. LOPERAMIDE [Concomitant]
     Active Substance: LOPERAMIDE
     Indication: BENIGN PROSTATIC HYPERPLASIA
     Route: 065
     Dates: start: 2005
  41. NIFEDIPINE. [Concomitant]
     Active Substance: NIFEDIPINE
     Route: 048
  42. AVANDIA [Concomitant]
     Active Substance: ROSIGLITAZONE MALEATE
     Route: 048
     Dates: start: 20040310
  43. METOPROLOL TARTRATE. [Concomitant]
     Active Substance: METOPROLOL TARTRATE
     Route: 048
     Dates: start: 20041214
  44. DILTIAZEM. [Concomitant]
     Active Substance: DILTIAZEM
     Route: 048
  45. NEXIUM [Suspect]
     Active Substance: ESOMEPRAZOLE MAGNESIUM
     Indication: GASTROOESOPHAGEAL REFLUX DISEASE
     Dosage: GENERIC
     Route: 048
     Dates: start: 2008, end: 2015
  46. PREVACID [Suspect]
     Active Substance: LANSOPRAZOLE
     Indication: GASTROOESOPHAGEAL REFLUX DISEASE
     Route: 065
     Dates: start: 2003, end: 2007
  47. PROTONIX [Suspect]
     Active Substance: PANTOPRAZOLE SODIUM
     Dosage: GENERIC
     Route: 065
     Dates: start: 2015
  48. IRBESARTAN. [Concomitant]
     Active Substance: IRBESARTAN
     Indication: BENIGN PROSTATIC HYPERPLASIA
     Route: 048
     Dates: start: 2005
  49. VITAMIN D [Concomitant]
     Active Substance: CHOLECALCIFEROL
     Indication: BONE DISORDER
     Dosage: 50,OOOIUNIT(LMCG=40IU)
     Route: 048
  50. LANTUS [Concomitant]
     Active Substance: INSULIN GLARGINE
     Dosage: 24 UNITS SUBCUTANEOUS ONCE EVERY DAY, 100 UNITS/ML)
     Route: 065
     Dates: start: 20031110
  51. UROXATRAL [Concomitant]
     Active Substance: ALFUZOSIN HYDROCHLORIDE
     Route: 048
  52. PLAVIX [Concomitant]
     Active Substance: CLOPIDOGREL BISULFATE
     Route: 048
  53. ISOSORBIDE. [Concomitant]
     Active Substance: ISOSORBIDE
     Route: 048
  54. CARVEDILOL. [Concomitant]
     Active Substance: CARVEDILOL
     Route: 048
  55. HYDRALAZINE [Concomitant]
     Active Substance: HYDRALAZINE HYDROCHLORIDE
     Route: 048
  56. METFORMIN [Concomitant]
     Active Substance: METFORMIN HYDROCHLORIDE
     Route: 048
     Dates: start: 20040105
  57. LIPITOR [Concomitant]
     Active Substance: ATORVASTATIN CALCIUM
     Route: 048
  58. VITAMIN D3 [Concomitant]
     Active Substance: CHOLECALCIFEROL
     Dosage: 400 INTI UNITS
     Route: 048
  59. LOSARTAN. [Concomitant]
     Active Substance: LOSARTAN
     Route: 048
  60. NEXIUM [Suspect]
     Active Substance: ESOMEPRAZOLE MAGNESIUM
     Indication: GASTROOESOPHAGEAL REFLUX DISEASE
     Route: 048
     Dates: start: 20100909
  61. METOCLOPRAMIDE. [Concomitant]
     Active Substance: METOCLOPRAMIDE
     Indication: BENIGN PROSTATIC HYPERPLASIA
     Route: 048
     Dates: start: 20020712
  62. HYDROCHLOROTHIAZIDE. [Concomitant]
     Active Substance: HYDROCHLOROTHIAZIDE
     Indication: BENIGN PROSTATIC HYPERPLASIA
     Route: 065
     Dates: start: 2005
  63. ATORVASTATIN [Concomitant]
     Active Substance: ATORVASTATIN
     Indication: BLOOD CHOLESTEROL
     Route: 048
     Dates: start: 20090129
  64. ALFUZOSIN [Concomitant]
     Active Substance: ALFUZOSIN
     Indication: BENIGN PROSTATIC HYPERPLASIA
     Route: 048
     Dates: start: 2005
  65. NITROGLYCERIN. [Concomitant]
     Active Substance: NITROGLYCERIN
     Indication: BENIGN PROSTATIC HYPERPLASIA
     Dosage: AS NEEDED
     Route: 048
  66. TAMSULOSIN [Concomitant]
     Active Substance: TAMSULOSIN
     Route: 048

REACTIONS (13)
  - Coronary artery disease [Unknown]
  - Hypertension [Unknown]
  - Nephrogenic anaemia [Unknown]
  - Renal failure [Unknown]
  - Renal injury [Unknown]
  - Acute kidney injury [Unknown]
  - Renal hypertension [Unknown]
  - Diabetes mellitus [Unknown]
  - Peripheral vascular disorder [Unknown]
  - End stage renal disease [Unknown]
  - Angina pectoris [Unknown]
  - Chronic kidney disease [Unknown]
  - Dehydration [Unknown]

NARRATIVE: CASE EVENT DATE: 20030606
